FAERS Safety Report 13456997 (Version 2)
Quarter: 2017Q3

REPORT INFORMATION
  Report Type: Spontaneous
  Country: US (occurrence: US)
  Receive Date: 20170419
  Receipt Date: 20170721
  Transmission Date: 20171127
  Serious: No
  Sender: FDA-Public Use
  Company Number: US-ST. RENATUS-2017STR00003

PATIENT
  Age: 52 Year
  Sex: Female
  Weight: 76.19 kg

DRUGS (1)
  1. KOVANAZE [Suspect]
     Active Substance: OXYMETAZOLINE HYDROCHLORIDE\TETRACAINE HYDROCHLORIDE
     Dosage: 2 DOSAGE UNITS, ONCE (4 MINUTES APART)
     Route: 045
     Dates: start: 20170207, end: 20170207

REACTIONS (8)
  - Nasal congestion [Not Recovered/Not Resolved]
  - Rhinalgia [Recovered/Resolved]
  - Eye pain [Recovered/Resolved]
  - Rhinorrhoea [Not Recovered/Not Resolved]
  - Epistaxis [Unknown]
  - Sinus headache [Recovered/Resolved]
  - Facial pain [Recovered/Resolved]
  - Ocular hyperaemia [Unknown]

NARRATIVE: CASE EVENT DATE: 201702
